FAERS Safety Report 11071631 (Version 1)
Quarter: 2015Q2

REPORT INFORMATION
  Report Type: Spontaneous
  Country: US (occurrence: None)
  Receive Date: 20150427
  Receipt Date: 20150427
  Transmission Date: 20150821
  Serious: Yes (Hospitalization)
  Sender: FDA-Public Use
  Company Number: None

PATIENT
  Age: 5 Year
  Sex: Female
  Weight: 19.05 kg

DRUGS (4)
  1. MIRALAX [Concomitant]
     Active Substance: POLYETHYLENE GLYCOL 3350
  2. NASONEX [Concomitant]
     Active Substance: MOMETASONE FUROATE
  3. MIRALAX [Suspect]
     Active Substance: POLYETHYLENE GLYCOL 3350
     Indication: CONSTIPATION
     Dosage: 1 CAPFUL ONCE DAILY, TAKEN BY MOUTH
     Route: 048
  4. CLARITIN CHEWABLES [Concomitant]

REACTIONS (10)
  - Mood altered [None]
  - Anger [None]
  - Aggression [None]
  - Obsessive-compulsive disorder [None]
  - Incoherent [None]
  - Hallucination, auditory [None]
  - Depressed mood [None]
  - Crying [None]
  - Seizure [None]
  - Abnormal behaviour [None]

NARRATIVE: CASE EVENT DATE: 20150314
